FAERS Safety Report 7251426-2 (Version None)
Quarter: 2011Q1

REPORT INFORMATION
  Report Type: 
  Country: None (occurrence: None)
  Receive Date: 20110128
  Receipt Date: 20110119
  Transmission Date: 20110831
  Serious: Yes (Hospitalization)
  Sender: FDA-Public Use
  Company Number: US-ASTRAZENECA-2011SE03336

PATIENT
  Age: 53 Year
  Sex: Female
  Weight: 49.9 kg

DRUGS (4)
  1. SYMBICORT [Suspect]
     Indication: CHRONIC OBSTRUCTIVE PULMONARY DISEASE
     Dosage: 160 UG
     Route: 055
     Dates: start: 20080101
  2. PROVENTIL [Concomitant]
  3. MUCOMYST [Concomitant]
  4. ALBUTEROL [Concomitant]

REACTIONS (2)
  - RESPIRATORY DISTRESS [None]
  - BRONCHITIS [None]
